FAERS Safety Report 4667297-4 (Version None)
Quarter: 2005Q2

REPORT INFORMATION
  Report Type: 
  Country: None (occurrence: None)
  Receive Date: 20050519
  Receipt Date: 20050519
  Transmission Date: 20051028
  Serious: Yes (Life-Threatening, Hospitalization)
  Sender: FDA-Public Use
  Company Number: None

PATIENT
  Age: 70 Year
  Sex: Male

DRUGS (1)
  1. FLUORESCEIN [Suspect]
     Indication: ANGIOGRAM
     Dosage: IV ONCE
     Route: 042

REACTIONS (4)
  - CARDIO-RESPIRATORY ARREST [None]
  - INFUSION RELATED REACTION [None]
  - PRURITUS GENERALISED [None]
  - URTICARIA [None]
